FAERS Safety Report 5108433-5 (Version None)
Quarter: 2006Q3

REPORT INFORMATION
  Report Type: 
  Country: None (occurrence: None)
  Receive Date: 20060915
  Receipt Date: 20060908
  Transmission Date: 20061208
  Serious: Yes (Death, Life-Threatening)
  Sender: FDA-Public Use
  Company Number: 430029N05USA

PATIENT
  Age: 62 Year
  Sex: Male

DRUGS (17)
  1. NOVANTRONE [Suspect]
     Dates: start: 20041209, end: 20041214
  2. GEMTUZUMAB OZOGAMICIN [Suspect]
     Indication: ACUTE MYELOID LEUKAEMIA
     Dosage: 10 MG, ONCE, INTRAVENOUS
     Route: 042
     Dates: start: 20041124, end: 20041124
  3. CYTARABINE [Suspect]
     Dates: start: 20041209, end: 20041214
  4. ETOPOSIDE [Suspect]
     Dates: start: 20041209, end: 20041214
  5. PANTOPRAZOLE SODIUM [Concomitant]
  6. ACYCLOVIR [Concomitant]
  7. ACETAMINOPHEN [Concomitant]
  8. DIPHENHYDRAMINE HCL [Concomitant]
  9. LORAZEPAM [Concomitant]
  10. LEVOFLOXACIN [Concomitant]
  11. VORICONAZOLE (VORICONAZOLE) [Concomitant]
  12. NYSTATIN [Concomitant]
  13. NEUPOGEN [Concomitant]
  14. SODIUM BICARBONATE IN PLASTIC CONTAINER [Concomitant]
  15. SODIUM CHLORIDE 0.9% [Concomitant]
  16. PROMETHAZINE [Concomitant]
  17. AMICAR [Concomitant]

REACTIONS (8)
  - BILIRUBIN CONJUGATED INCREASED [None]
  - BLOOD BILIRUBIN INCREASED [None]
  - DRUG TOXICITY [None]
  - HYPOVOLAEMIA [None]
  - PNEUMONIA [None]
  - RENAL FAILURE ACUTE [None]
  - RESPIRATORY DISTRESS [None]
  - WEIGHT INCREASED [None]
